FAERS Safety Report 10080813 (Version 2)
Quarter: 2014Q2

REPORT INFORMATION
  Report Type: Spontaneous
  Country: US (occurrence: US)
  Receive Date: 20140416
  Receipt Date: 20140603
  Transmission Date: 20141212
  Serious: Yes (Other)
  Sender: FDA-Public Use
  Company Number: US-SA-2014SA048656

PATIENT
  Age: 19 Year
  Sex: Male

DRUGS (1)
  1. FABRAZYME [Suspect]
     Indication: FABRY^S DISEASE
     Dosage: STRENGTH 35 MG
     Route: 042
     Dates: start: 20120117

REACTIONS (1)
  - Mental disorder [Recovered/Resolved]
